FAERS Safety Report 20715164 (Version 14)
Quarter: 2023Q1

REPORT INFORMATION
  Report Type: Report from Study
  Country: US (occurrence: None)
  Receive Date: 20220415
  Receipt Date: 20230208
  Transmission Date: 20230418
  Serious: Yes (Hospitalization)
  Sender: FDA-Public Use
  Company Number: US-ROCHE-3076758

PATIENT
  Age: 72 Year
  Sex: Male
  Weight: 84.81 kg

DRUGS (21)
  1. ATEZOLIZUMAB [Suspect]
     Active Substance: ATEZOLIZUMAB
     Indication: Hormone-refractory prostate cancer
     Route: 041
     Dates: start: 20220324
  2. CABOZANTINIB [Suspect]
     Active Substance: CABOZANTINIB
     Indication: Hormone-refractory prostate cancer
     Dosage: DATE OF MOST RECENT DOSE: 03/APR/2022
     Route: 048
     Dates: start: 20220324, end: 20220406
  3. TAMSULOSIN HYDROCHLORIDE [Concomitant]
     Active Substance: TAMSULOSIN HYDROCHLORIDE
     Dates: start: 20161208
  4. LUPRON [Concomitant]
     Active Substance: LEUPROLIDE ACETATE
     Dates: start: 20170301
  5. INDOMETHACIN [Concomitant]
     Active Substance: INDOMETHACIN
  6. HALDOL [Concomitant]
     Active Substance: HALOPERIDOL
     Indication: Agitation
     Route: 042
     Dates: start: 20220406, end: 20220408
  7. CHLORHEXIDINE [Concomitant]
     Active Substance: CHLORHEXIDINE
     Route: 061
     Dates: start: 20220408
  8. LIDOCAINE [Concomitant]
     Active Substance: LIDOCAINE
     Dates: start: 20220406
  9. MAGNESIUM SULFATE [Concomitant]
     Active Substance: MAGNESIUM SULFATE
     Dates: start: 20220406, end: 20220406
  10. OLANZAPINE [Concomitant]
     Active Substance: OLANZAPINE
     Dates: start: 20220407, end: 20220408
  11. PANTOPRAZOLE [Concomitant]
     Active Substance: PANTOPRAZOLE
     Dates: start: 20220408, end: 20220408
  12. POTASSIUM CHLORIDE [Concomitant]
     Active Substance: POTASSIUM CHLORIDE
     Dates: start: 20220406, end: 20220406
  13. PREDNISONE [Concomitant]
     Active Substance: PREDNISONE
     Dates: start: 20220408
  14. PROPOFOL [Concomitant]
     Active Substance: PROPOFOL
     Dates: start: 20220408, end: 20220408
  15. ROCURONIUM [Concomitant]
     Active Substance: ROCURONIUM BROMIDE
     Dates: start: 20220408, end: 20220408
  16. TRAZODONE [Concomitant]
     Active Substance: TRAZODONE HYDROCHLORIDE
     Dates: start: 20220407
  17. VERSED [Concomitant]
     Active Substance: MIDAZOLAM HYDROCHLORIDE
     Dates: start: 20220408, end: 20220408
  18. MELATONIN [Concomitant]
     Active Substance: MELATONIN
     Dates: start: 20220407
  19. ETOMIDATE [Concomitant]
     Active Substance: ETOMIDATE
  20. FENTANYL [Concomitant]
     Active Substance: FENTANYL
  21. POTASSIUM PHOSPHATE [Concomitant]
     Active Substance: POTASSIUM PHOSPHATE

REACTIONS (3)
  - Fall [Unknown]
  - Delirium [Recovered/Resolved]
  - Laryngeal oedema [Recovered/Resolved]

NARRATIVE: CASE EVENT DATE: 20220404
